FAERS Safety Report 5703884-X (Version None)
Quarter: 2008Q2

REPORT INFORMATION
  Report Type: 
  Country: None (occurrence: None)
  Receive Date: 20080414
  Receipt Date: 20080404
  Transmission Date: 20081010
  Serious: Yes (Hospitalization)
  Sender: FDA-Public Use
  Company Number: US-ELI_LILLY_AND_COMPANY-US200804001461

PATIENT
  Sex: Female

DRUGS (3)
  1. ZYPREXA [Suspect]
     Indication: MANIA
     Dosage: 5 MG, UNK
  2. ZYPREXA [Suspect]
     Dosage: 7.5 MG, EACH EVENING
  3. ZYPREXA [Suspect]
     Dosage: UNK MG, EACH MORNING

REACTIONS (7)
  - APPETITE DISORDER [None]
  - DRY EYE [None]
  - DRY MOUTH [None]
  - FOOD CRAVING [None]
  - HOSPITALISATION [None]
  - NASAL DRYNESS [None]
  - WEIGHT DECREASED [None]
